FAERS Safety Report 17144355 (Version 1)
Quarter: 2019Q4

REPORT INFORMATION
  Report Type: Other
  Country: RS (occurrence: RS)
  Receive Date: 20191212
  Receipt Date: 20191212
  Transmission Date: 20200122
  Serious: Yes (Hospitalization)
  Sender: FDA-Public Use
  Company Number: RS-ORCHID HEALTHCARE-2077753

PATIENT
  Age: 48 Year
  Sex: Female

DRUGS (6)
  1. RANITIDINE. [Concomitant]
     Active Substance: RANITIDINE
     Route: 065
  2. B-COMPLEX VITAMINS [Concomitant]
     Route: 065
  3. CALCIUM CARBONATE. [Concomitant]
     Active Substance: CALCIUM CARBONATE
     Route: 065
  4. CARVEDILOL. [Concomitant]
     Active Substance: CARVEDILOL
     Route: 065
  5. METRONIDAZOLE. [Suspect]
     Active Substance: METRONIDAZOLE
     Route: 065
  6. LEVOFLOXACIN. [Suspect]
     Active Substance: LEVOFLOXACIN
     Indication: URINARY TRACT INFECTION
     Route: 042

REACTIONS (3)
  - Overdose [Recovered/Resolved]
  - Neurotoxicity [Recovered/Resolved]
  - Drug interaction [Recovered/Resolved]
